FAERS Safety Report 4357004-7 (Version None)
Quarter: 2004Q2

REPORT INFORMATION
  Report Type: 
  Country: None (occurrence: None)
  Receive Date: 20040512
  Receipt Date: 20040428
  Transmission Date: 20050107
  Serious: Yes (Hospitalization)
  Sender: FDA-Public Use
  Company Number: PHBS2004ZA06177

PATIENT
  Sex: Male

DRUGS (2)
  1. ZELNORM [Suspect]
     Route: 048
     Dates: start: 20040423
  2. ANTIDEPRESSANTS [Concomitant]

REACTIONS (2)
  - ANAPHYLACTIC REACTION [None]
  - ANGIONEUROTIC OEDEMA [None]
